FAERS Safety Report 6588687-9 (Version None)
Quarter: 2010Q1

REPORT INFORMATION
  Report Type: 
  Country: None (occurrence: None)
  Receive Date: 20100202
  Receipt Date: 20091001
  Transmission Date: 20100710
  Serious: No
  Sender: FDA-Public Use
  Company Number: 2010-00643

PATIENT
  Age: 53 Year
  Sex: Female
  Weight: 154.223 kg

DRUGS (3)
  1. ZICAM COLD REMEDY GEL SWABS [Suspect]
     Dosage: QID - SPORADIC;
     Dates: start: 20080101, end: 20090301
  2. LASIX [Concomitant]
  3. WELLBUTRIN [Concomitant]

REACTIONS (1)
  - ANOSMIA [None]
